FAERS Safety Report 17638249 (Version 1)
Quarter: 2020Q2

REPORT INFORMATION
  Report Type: Spontaneous
  Country: US (occurrence: US)
  Receive Date: 20200407
  Receipt Date: 20200407
  Transmission Date: 20200713
  Serious: Yes (Disabling, Other)
  Sender: FDA-Public Use
  Company Number: None

PATIENT
  Age: 66 Year
  Sex: Female
  Weight: 102.6 kg

DRUGS (10)
  1. METFORMIN [Concomitant]
     Active Substance: METFORMIN HYDROCHLORIDE
  2. XOPENEX [Concomitant]
     Active Substance: LEVALBUTEROL HYDROCHLORIDE
  3. COLESTID [Concomitant]
     Active Substance: COLESTIPOL HYDROCHLORIDE
  4. MUCOMYST [Concomitant]
     Active Substance: ACETYLCYSTEINE
  5. OTEZLA [Concomitant]
     Active Substance: APREMILAST
  6. LEVAQUIN [Concomitant]
     Active Substance: LEVOFLOXACIN
  7. SPIRONOLACTONE. [Concomitant]
     Active Substance: SPIRONOLACTONE
  8. ATORVASTATIN [Concomitant]
     Active Substance: ATORVASTATIN
  9. IBUPROFEN. [Concomitant]
     Active Substance: IBUPROFEN
  10. JARDIANCE [Suspect]
     Active Substance: EMPAGLIFLOZIN
     Indication: DIABETES MELLITUS
     Dosage: ?          QUANTITY:1 TABLET(S);?
     Route: 048
     Dates: start: 20191104

REACTIONS (4)
  - Respiratory disorder [None]
  - Lymphadenopathy [None]
  - Synovial cyst [None]
  - Cyst [None]
